FAERS Safety Report 6722476-7 (Version None)
Quarter: 2010Q2

REPORT INFORMATION
  Report Type: 
  Country: None (occurrence: None)
  Receive Date: 20100512
  Receipt Date: 20100512
  Transmission Date: 20101027
  Serious: No
  Sender: FDA-Public Use
  Company Number: None

PATIENT

DRUGS (2)
  1. CHILDREN'S MOTRIN [Suspect]
  2. CHILDREN'S TYLENOL PLUS COLD [Suspect]

REACTIONS (2)
  - ABDOMINAL PAIN UPPER [None]
  - PRODUCT QUALITY ISSUE [None]
